FAERS Safety Report 18277100 (Version 1)
Quarter: 2020Q3

REPORT INFORMATION
  Report Type: Spontaneous
  Country: US (occurrence: US)
  Receive Date: 20200916
  Receipt Date: 20200916
  Transmission Date: 20201103
  Serious: Yes (Hospitalization)
  Sender: FDA-Public Use
  Company Number: None

PATIENT
  Age: 42 Year
  Sex: Female
  Weight: 66.6 kg

DRUGS (5)
  1. ANAVIP [Suspect]
     Active Substance: PIT VIPER (CROTALINAE) IMMUNE GLOBULIN ANTIVENIN (EQUINE)
     Indication: SNAKE BITE
     Dosage: ?          OTHER FREQUENCY:10 VIALS X1;?
     Route: 041
     Dates: start: 20200821, end: 20200822
  2. ONDANSETRON 8 MG IV [Concomitant]
     Dates: start: 20200821, end: 20200821
  3. TETANUS TOXOID ? DIPTHERIA ? ACELLULAR PERTUSSIS VACCINE [Concomitant]
     Dates: start: 20200821, end: 20200821
  4. MORPHINE 2 MG IV [Concomitant]
     Dates: start: 20200821, end: 20200821
  5. SODIUM CHLORIDE BOLUS 0.9% [Concomitant]
     Dates: start: 20200821, end: 20200821

REACTIONS (7)
  - Swelling face [None]
  - Urticaria [None]
  - Infusion related reaction [None]
  - Dizziness [None]
  - Nasal congestion [None]
  - Nausea [None]
  - Dyspnoea [None]

NARRATIVE: CASE EVENT DATE: 20200821
